FAERS Safety Report 10627178 (Version 2)
Quarter: 2014Q4

REPORT INFORMATION
  Report Type: Report from Study
  Country: US (occurrence: US)
  Receive Date: 20141204
  Receipt Date: 20141204
  Transmission Date: 20150529
  Serious: Yes (Hospitalization)
  Sender: FDA-Public Use
  Company Number: US-GLAXOSMITHKLINE-A1073613A

PATIENT
  Age: 68 Year
  Sex: Female
  Weight: 63.6 kg

DRUGS (2)
  1. TRAMETINIB [Suspect]
     Active Substance: TRAMETINIB
     Indication: NEOPLASM
     Route: 048
     Dates: start: 20131205
  2. GSK2141795 CAPSULE [Suspect]
     Active Substance: UPROSERTIB
     Indication: NEOPLASM
     Route: 048
     Dates: start: 20131104

REACTIONS (3)
  - Nausea [Recovered/Resolved]
  - Vomiting [Recovered/Resolved]
  - Dizziness [Not Recovered/Not Resolved]

NARRATIVE: CASE EVENT DATE: 20140515
